FAERS Safety Report 7558124-6 (Version None)
Quarter: 2011Q2

REPORT INFORMATION
  Report Type: 
  Country: None (occurrence: None)
  Receive Date: 20110620
  Receipt Date: 20110609
  Transmission Date: 20111010
  Serious: Yes (Life-Threatening)
  Sender: FDA-Public Use
  Company Number: DE-TEVA-285903GER

PATIENT
  Age: 80 Year
  Sex: Male
  Weight: 90 kg

DRUGS (11)
  1. TEMAZEPAM [Concomitant]
     Dosage: 10 MILLIGRAM;
     Route: 048
  2. LEVOTHYROXIN-NATRIUM [Concomitant]
     Dosage: 75 MICROGRAM;
     Route: 048
  3. GLIMEPIRIDE [Suspect]
     Indication: DIABETES MELLITUS
     Dosage: 1 MILLIGRAM;
     Route: 048
     Dates: start: 20110101, end: 20110124
  4. RAMIPRIL [Concomitant]
     Dosage: 2.5 MILLIGRAM;
     Route: 048
  5. SPIRONOLACTONE [Concomitant]
     Dosage: 50 MILLIGRAM;
     Route: 048
  6. ACETYL SALICYLIC ACID COMPOUND TAB [Concomitant]
     Dosage: 100 MILLIGRAM;
     Route: 048
  7. ACETAMINOPHEN [Concomitant]
     Dosage: 500 MILLIGRAM;
     Route: 048
  8. SIMVASTATIN [Concomitant]
     Dosage: 20 MILLIGRAM;
     Route: 048
  9. PREDNISOLONE [Concomitant]
     Dosage: 7.5 MILLIGRAM;
     Route: 048
  10. FUROSEMIDE [Concomitant]
     Dosage: 40 MILLIGRAM;
     Route: 048
  11. BISOPROLOL FUMARATE [Concomitant]
     Dosage: 5 MILLIGRAM;
     Route: 048

REACTIONS (2)
  - COMA [None]
  - HYPOGLYCAEMIA [None]
